FAERS Safety Report 8790215 (Version 3)
Quarter: 2013Q1

REPORT INFORMATION
  Report Type: Report from Study
  Country: JP (occurrence: JP)
  Receive Date: 20120917
  Receipt Date: 20130321
  Transmission Date: 20140127
  Serious: Yes (Hospitalization)
  Sender: FDA-Public Use
  Company Number: JP-MYLANLABS-2012S1016157

PATIENT
  Age: 77 Year
  Sex: Male
  Weight: 53 kg

DRUGS (12)
  1. EPIRUBICIN [Suspect]
     Indication: HEPATIC CANCER
     Route: 042
     Dates: start: 20120502, end: 20120502
  2. EPIRUBICIN [Suspect]
     Indication: HEPATIC CANCER
     Route: 042
     Dates: start: 20120518, end: 20120518
  3. TSU-68 [Suspect]
     Indication: HEPATIC CANCER
     Route: 048
     Dates: start: 20120525, end: 20120801
  4. URSO /00465701/ [Concomitant]
     Indication: CHRONIC HEPATITIS C
     Route: 048
     Dates: start: 20120513, end: 20120821
  5. VOLTMIE [Concomitant]
     Indication: PROPHYLAXIS
     Route: 048
     Dates: end: 20120813
  6. BIO-THREE [Concomitant]
     Indication: PROPHYLAXIS
     Route: 048
     Dates: end: 20120815
  7. HARNAL [Concomitant]
     Indication: BENIGN PROSTATIC HYPERPLASIA
     Route: 048
  8. UBRETID [Concomitant]
     Indication: BENIGN PROSTATIC HYPERPLASIA
     Route: 048
  9. LIVACT /00847901/ [Concomitant]
     Indication: HEPATIC CANCER
     Route: 048
     Dates: start: 20120412
  10. AMINOLEBAN /01982601/ [Concomitant]
     Indication: HEPATIC CANCER
     Route: 048
     Dates: start: 20120507
  11. LIPIODOL [Concomitant]
     Indication: HEPATIC CANCER
     Route: 013
     Dates: start: 20120502, end: 20120502
  12. LIPIODOL [Concomitant]
     Indication: HEPATIC CANCER
     Route: 013
     Dates: start: 20120518, end: 20120518

REACTIONS (2)
  - Ascites [Recovered/Resolved]
  - Oedema peripheral [Recovering/Resolving]
